FAERS Safety Report 5611608-X (Version None)
Quarter: 2008Q1

REPORT INFORMATION
  Report Type: 
  Country: None (occurrence: None)
  Receive Date: 20080201
  Receipt Date: 20080124
  Transmission Date: 20080703
  Serious: Yes (Other)
  Sender: FDA-Public Use
  Company Number: US-PFIZER INC-2008007794

PATIENT
  Sex: Female
  Weight: 65.454 kg

DRUGS (1)
  1. LIPITOR [Suspect]
     Indication: BLOOD CHOLESTEROL INCREASED
     Dates: start: 20070301, end: 20070101

REACTIONS (6)
  - ASTHENIA [None]
  - BURNING SENSATION [None]
  - FALL [None]
  - MUSCLE INJURY [None]
  - NERVE INJURY [None]
  - PAIN IN EXTREMITY [None]
